FAERS Safety Report 24213062 (Version 2)
Quarter: 2024Q3

REPORT INFORMATION
  Report Type: Spontaneous
  Country: AU (occurrence: AU)
  Receive Date: 20240815
  Receipt Date: 20240820
  Transmission Date: 20241016
  Serious: Yes (Hospitalization, Other)
  Sender: PFIZER
  Company Number: AU-MLMSERVICE-20240802-PI150360-00082-3

PATIENT
  Age: 76 Year
  Sex: Male

DRUGS (4)
  1. CARBOPLATIN [Suspect]
     Active Substance: CARBOPLATIN
     Indication: Metastatic carcinoma of the bladder
     Dosage: UNK, CYCLIC; FULL DOSE; AUC 5 DAY 1
     Route: 042
  2. CARBOPLATIN [Suspect]
     Active Substance: CARBOPLATIN
     Dosage: FULL DOSE
     Route: 042
  3. ETOPOSIDE [Suspect]
     Active Substance: ETOPOSIDE
     Indication: Metastatic carcinoma of the bladder
     Dosage: 100 MG/M2, CYCLIC;  ON DAYS 1-3
  4. ETOPOSIDE [Suspect]
     Active Substance: ETOPOSIDE
     Dosage: FULL DOSE

REACTIONS (2)
  - Neutropenic sepsis [Unknown]
  - Off label use [Unknown]
